FAERS Safety Report 17208319 (Version 17)
Quarter: 2024Q4

REPORT INFORMATION
  Report Type: Report from Study
  Country: JP (occurrence: JP)
  Receive Date: 20191227
  Receipt Date: 20241205
  Transmission Date: 20250115
  Serious: Yes (Hospitalization, Other)
  Sender: ALNYLAM PHARMACEUTICALS
  Company Number: JP-ALNYLAM PHARMACEUTICALS, INC.-ALN-2019-001010

PATIENT

DRUGS (59)
  1. ONPATTRO [Suspect]
     Active Substance: PATISIRAN SODIUM
     Indication: Hereditary neuropathic amyloidosis
     Dosage: 16.8 MILLIGRAM
     Route: 041
     Dates: start: 20191126, end: 20191126
  2. ONPATTRO [Suspect]
     Active Substance: PATISIRAN SODIUM
     Dosage: 16.8 MILLIGRAM
     Route: 041
     Dates: start: 20191224, end: 20200114
  3. ONPATTRO [Suspect]
     Active Substance: PATISIRAN SODIUM
     Dosage: 16.2 MILLIGRAM
     Route: 041
     Dates: start: 20200204, end: 20200226
  4. ONPATTRO [Suspect]
     Active Substance: PATISIRAN SODIUM
     Dosage: 15.9 MILLIGRAM
     Route: 041
     Dates: start: 20200318, end: 20200318
  5. ONPATTRO [Suspect]
     Active Substance: PATISIRAN SODIUM
     Dosage: 16.2 MILLIGRAM
     Route: 041
     Dates: start: 20200408, end: 20200519
  6. ONPATTRO [Suspect]
     Active Substance: PATISIRAN SODIUM
     Dosage: 15.0 MILLIGRAM
     Route: 041
     Dates: start: 20200618, end: 20200618
  7. ONPATTRO [Suspect]
     Active Substance: PATISIRAN SODIUM
     Dosage: 15.9 MILLIGRAM
     Route: 041
     Dates: start: 20200701, end: 20200701
  8. ONPATTRO [Suspect]
     Active Substance: PATISIRAN SODIUM
     Dosage: 16.2 MILLIGRAM
     Route: 041
     Dates: start: 20200722, end: 20200722
  9. ONPATTRO [Suspect]
     Active Substance: PATISIRAN SODIUM
     Dosage: 15.6 MILLIGRAM
     Route: 041
     Dates: start: 20200812, end: 20201009
  10. ONPATTRO [Suspect]
     Active Substance: PATISIRAN SODIUM
     Dosage: 16.2 MILLIGRAM
     Route: 041
     Dates: start: 20201102, end: 20201102
  11. ONPATTRO [Suspect]
     Active Substance: PATISIRAN SODIUM
     Dosage: 15.3 MILLIGRAM
     Route: 041
     Dates: start: 20201126, end: 20201126
  12. ONPATTRO [Suspect]
     Active Substance: PATISIRAN SODIUM
     Dosage: 15.9 MILLIGRAM
     Route: 041
     Dates: start: 20201221, end: 20201221
  13. ONPATTRO [Suspect]
     Active Substance: PATISIRAN SODIUM
     Dosage: 16.2 MILLIGRAM
     Route: 041
     Dates: start: 20210113, end: 20210113
  14. ONPATTRO [Suspect]
     Active Substance: PATISIRAN SODIUM
     Dosage: 16.5 MILLIGRAM
     Route: 041
     Dates: start: 20210204, end: 20210204
  15. ONPATTRO [Suspect]
     Active Substance: PATISIRAN SODIUM
     Dosage: 17.1 MILLIGRAM
     Route: 041
     Dates: start: 20210301, end: 20210301
  16. ONPATTRO [Suspect]
     Active Substance: PATISIRAN SODIUM
     Dosage: 16.2 MILLIGRAM
     Route: 041
     Dates: start: 20210401, end: 20210519
  17. ONPATTRO [Suspect]
     Active Substance: PATISIRAN SODIUM
     Dosage: 15 MILLIGRAM
     Route: 041
     Dates: start: 20210618, end: 20210816
  18. ONPATTRO [Suspect]
     Active Substance: PATISIRAN SODIUM
     Dosage: 15.3 MILLIGRAM
     Route: 041
     Dates: start: 20210906, end: 20210929
  19. ONPATTRO [Suspect]
     Active Substance: PATISIRAN SODIUM
     Dosage: 15.6 MILLIGRAM
     Route: 041
     Dates: start: 20211027, end: 20211126
  20. ONPATTRO [Suspect]
     Active Substance: PATISIRAN SODIUM
     Dosage: 15.3 MILLIGRAM
     Route: 041
     Dates: start: 20211222, end: 20211222
  21. ONPATTRO [Suspect]
     Active Substance: PATISIRAN SODIUM
     Dosage: 15.0 MILLIGRAM
     Route: 041
     Dates: start: 20220204, end: 20220616
  22. ONPATTRO [Suspect]
     Active Substance: PATISIRAN SODIUM
     Dosage: 15.3 MILLIGRAM
     Route: 041
     Dates: start: 20220720, end: 20220720
  23. ONPATTRO [Suspect]
     Active Substance: PATISIRAN SODIUM
     Dosage: 15 MILLIGRAM
     Route: 041
     Dates: start: 20220818, end: 20220818
  24. ONPATTRO [Suspect]
     Active Substance: PATISIRAN SODIUM
     Dosage: 14.7 MILLIGRAM
     Route: 041
     Dates: start: 20220920, end: 20221107
  25. ONPATTRO [Suspect]
     Active Substance: PATISIRAN SODIUM
     Dosage: 15 MILLIGRAM
     Route: 041
     Dates: start: 20221208, end: 20221208
  26. ONPATTRO [Suspect]
     Active Substance: PATISIRAN SODIUM
     Dosage: 14.7 MILLIGRAM
     Route: 041
     Dates: start: 20230110, end: 20230110
  27. ONPATTRO [Suspect]
     Active Substance: PATISIRAN SODIUM
     Dosage: 14.4 MILLIGRAM
     Route: 041
     Dates: start: 20230203, end: 20230203
  28. GASTER [Concomitant]
     Active Substance: FAMOTIDINE
     Indication: Prophylaxis
     Dosage: 20 MILLIGRAM, SINGLE
     Route: 041
     Dates: start: 20191126, end: 20191126
  29. GASTER [Concomitant]
     Active Substance: FAMOTIDINE
     Indication: Prophylaxis
     Dosage: 20 MILLIGRAM
     Route: 065
     Dates: start: 20191224, end: 20230203
  30. POLARAMINE [Concomitant]
     Active Substance: DEXCHLORPHENIRAMINE MALEATE
     Indication: Prophylaxis
     Dosage: 5 MILLIGRAM
     Route: 042
     Dates: start: 20191126, end: 20230203
  31. DEXAMETHASONE SODIUM PHOSPHATE [Concomitant]
     Active Substance: DEXAMETHASONE SODIUM PHOSPHATE
     Indication: Prophylaxis
     Dosage: 9.9 MILLIGRAM
     Route: 042
     Dates: start: 20191126, end: 20230203
  32. CALONAL [Concomitant]
     Active Substance: ACETAMINOPHEN
     Indication: Prophylaxis
     Dosage: 500 MILLIGRAM
     Route: 048
     Dates: start: 20191126, end: 20230203
  33. CALONAL [Concomitant]
     Active Substance: ACETAMINOPHEN
     Dosage: 500 MILLIGRAM, SINGLE
     Route: 065
     Dates: start: 20191224
  34. VITAMINS [Concomitant]
     Active Substance: VITAMINS
     Indication: Vitamin supplementation
     Dosage: 1 GRAM, SINGLE
     Route: 048
     Dates: start: 20191126
  35. VITAMINS [Concomitant]
     Active Substance: VITAMINS
     Indication: Prophylaxis
     Dosage: 1 GRAM, QD
     Route: 065
  36. NEXIUM [Concomitant]
     Active Substance: ESOMEPRAZOLE MAGNESIUM
     Indication: Hereditary neuropathic amyloidosis
     Dosage: 20 MILLIGRAM, QD
     Route: 065
  37. NEXIUM [Concomitant]
     Active Substance: ESOMEPRAZOLE MAGNESIUM
     Indication: Abdominal discomfort
  38. MIDODRINE HYDROCHLORIDE [Concomitant]
     Active Substance: MIDODRINE HYDROCHLORIDE
     Indication: Hereditary neuropathic amyloidosis
     Dosage: 1 MILLIGRAM, BID
     Route: 065
  39. MIDODRINE HYDROCHLORIDE [Concomitant]
     Active Substance: MIDODRINE HYDROCHLORIDE
     Indication: Abdominal discomfort
     Dosage: 2 MILLIGRAM
     Route: 065
  40. MIDODRINE HYDROCHLORIDE [Concomitant]
     Active Substance: MIDODRINE HYDROCHLORIDE
     Dosage: 2 MILLIGRAM, BID
     Route: 065
  41. TEPRENONE [Concomitant]
     Active Substance: TEPRENONE
     Indication: Hereditary neuropathic amyloidosis
     Dosage: 50 MILLIGRAM, TID
     Route: 048
  42. TEPRENONE [Concomitant]
     Active Substance: TEPRENONE
     Indication: Abdominal discomfort
  43. MOSAPRIDE CITRATE [Concomitant]
     Active Substance: MOSAPRIDE CITRATE
     Indication: Hereditary neuropathic amyloidosis
     Dosage: 5 MILLIGRAM, THREE TIMES
     Route: 065
  44. MOSAPRIDE CITRATE [Concomitant]
     Active Substance: MOSAPRIDE CITRATE
     Indication: Abdominal discomfort
     Dosage: 5 MILLIGRAM, TID
     Route: 065
  45. TOVIAZ [Concomitant]
     Active Substance: FESOTERODINE FUMARATE
     Indication: Hereditary neuropathic amyloidosis
     Dosage: 4 MILLIGRAM
     Route: 048
  46. TOVIAZ [Concomitant]
     Active Substance: FESOTERODINE FUMARATE
     Indication: Abdominal discomfort
     Dosage: 4 MILLIGRAM, QD
     Route: 065
  47. MOSAPRIDE CITRATE [Concomitant]
     Active Substance: MOSAPRIDE CITRATE
     Indication: Hereditary neuropathic amyloidosis
     Dosage: 5 MILLIGRAM, TID
     Route: 048
  48. MOSAPRIDE CITRATE [Concomitant]
     Active Substance: MOSAPRIDE CITRATE
     Indication: Abdominal discomfort
  49. ELOBIXIBAT [Concomitant]
     Active Substance: ELOBIXIBAT
     Indication: Hereditary neuropathic amyloidosis
     Dosage: 5 MILLIGRAM, BID
     Route: 048
  50. ELOBIXIBAT [Concomitant]
     Active Substance: ELOBIXIBAT
     Indication: Abdominal discomfort
     Dosage: 10 MILLIGRAM, QD
     Route: 065
  51. Ozex [Concomitant]
     Indication: Infected dermal cyst
     Dosage: 150 MILLIGRAM, TID
     Route: 065
     Dates: end: 20191225
  52. VESICARE [Concomitant]
     Active Substance: SOLIFENACIN SUCCINATE
     Indication: Hereditary neuropathic amyloidosis
     Dosage: 2.5 MILLIGRAM, QD
     Route: 065
  53. VESICARE [Concomitant]
     Active Substance: SOLIFENACIN SUCCINATE
     Indication: Abdominal discomfort
     Dosage: 5 MILLIGRAM
     Route: 065
  54. NAUZELIN [Concomitant]
     Active Substance: DOMPERIDONE
     Indication: Hereditary neuropathic amyloidosis
     Dosage: 60 MILLIGRAM, PRN
     Route: 065
  55. ALINAMIN F [Concomitant]
     Active Substance: FURSULTIAMINE HYDROCHLORIDE
     Indication: Hereditary neuropathic amyloidosis
     Dosage: 25 MILLIGRAM, BID
     Route: 065
     Dates: start: 20210816
  56. DROXIDOPA [Concomitant]
     Active Substance: DROXIDOPA
     Indication: Hereditary neuropathic amyloidosis
     Dosage: 100 MILLIGRAM, BID
     Route: 065
     Dates: start: 20210816
  57. LEVETIRACETAM [Concomitant]
     Active Substance: LEVETIRACETAM
     Indication: Hereditary neuropathic amyloidosis
     Dosage: 250 MILLIGRAM, BID
     Route: 065
     Dates: start: 20210816
  58. REMERON [Concomitant]
     Active Substance: MIRTAZAPINE
     Indication: Hereditary neuropathic amyloidosis
     Dosage: 7.5 MILLIGRAM, QD
     Route: 065
     Dates: start: 20210816
  59. TEPRENONE [Concomitant]
     Active Substance: TEPRENONE
     Indication: Hereditary neuropathic amyloidosis
     Dosage: 50 MILLIGRAM, TID
     Route: 048

REACTIONS (15)
  - Vitreous opacities [Not Recovered/Not Resolved]
  - Infusion related reaction [Recovering/Resolving]
  - Vomiting [Recovering/Resolving]
  - White blood cell count increased [Recovered/Resolved]
  - Nausea [Recovered/Resolved]
  - Nausea [Recovered/Resolved]
  - Abdominal pain upper [Recovered/Resolved]
  - Chest discomfort [Recovered/Resolved]
  - Vomiting [Recovering/Resolving]
  - Urticaria [Recovering/Resolving]
  - Erythema [Recovering/Resolving]
  - Cough [Recovering/Resolving]
  - Nausea [Recovered/Resolved]
  - Inappropriate schedule of product administration [Unknown]
  - Inappropriate schedule of product administration [Unknown]

NARRATIVE: CASE EVENT DATE: 20191224
